FAERS Safety Report 7560471-9 (Version None)
Quarter: 2011Q2

REPORT INFORMATION
  Report Type: 
  Country: None (occurrence: None)
  Receive Date: 20110621
  Receipt Date: 20110616
  Transmission Date: 20111010
  Serious: Yes (Hospitalization, Other)
  Sender: FDA-Public Use
  Company Number: DE-AMGEN-QUU438331

PATIENT
  Age: 71 Year
  Sex: Female
  Weight: 94 kg

DRUGS (36)
  1. AMLODIPINE [Concomitant]
  2. METOPROLOL TARTRATE [Concomitant]
  3. ENALAPRIL MALEATE [Concomitant]
  4. PRAVASTATIN [Concomitant]
  5. PANTOPRAZOLE [Concomitant]
  6. ENOXAPARIN [Concomitant]
  7. METAMIZOLE SODIUM [Concomitant]
  8. CYANOCOBALAMIN [Concomitant]
  9. DIGOXIN [Concomitant]
  10. FERROUS SULFATE TAB [Concomitant]
  11. NOVORAPID FLEXPEN [Concomitant]
  12. CARVEDILOL [Concomitant]
  13. METFORMIN HCL [Concomitant]
  14. INSULIN [Concomitant]
  15. CARDIOVASCULAR SYSTEM DRUGS [Concomitant]
  16. PHENPROCOUMON [Concomitant]
  17. HERBAL SUPPLEMENT [Concomitant]
  18. LISINOPRIL [Concomitant]
  19. TIOTROPIUM BROMIDE [Concomitant]
  20. SIMVASTATIN [Concomitant]
  21. ARANESP [Suspect]
     Indication: RENAL FAILURE CHRONIC
     Dosage: 40 A?G, QWK
     Route: 058
     Dates: start: 20091001, end: 20100701
  22. GLIQUIDONE [Suspect]
  23. METAMIZOLE [Concomitant]
     Dosage: UNK UNK, PRN
  24. FUROSEMIDE [Concomitant]
  25. MULTI-VITAMINS [Concomitant]
  26. GLIMEPIRIDE [Concomitant]
  27. THEOPHYLLINE [Concomitant]
  28. FORMOTEROL FUMARATE [Concomitant]
  29. TRAMADOL HCL [Concomitant]
  30. LEVOTHYROXINE SODIUM [Concomitant]
  31. ALLOPURINOL [Concomitant]
     Dosage: 150 MG, UNK
  32. BUDESONIDE [Concomitant]
  33. WOBENZYME [Concomitant]
  34. GARLIC [Concomitant]
  35. HEPARIN [Concomitant]
  36. PROTAPHANE MC [Concomitant]

REACTIONS (22)
  - RECTAL HAEMORRHAGE [None]
  - HYPOPNOEA [None]
  - LEFT VENTRICULAR FAILURE [None]
  - APLASIA PURE RED CELL [None]
  - NEUTRALISING ANTIBODIES POSITIVE [None]
  - MUSCLE TWITCHING [None]
  - REFRACTORY ANAEMIA [None]
  - ANAEMIA [None]
  - COLONIC POLYP [None]
  - ANAL FISSURE [None]
  - PLEURAL EFFUSION [None]
  - ANTI-ERYTHROPOIETIN ANTIBODY POSITIVE [None]
  - GASTRITIS EROSIVE [None]
  - VAGINAL ABSCESS [None]
  - VARICOSE VEIN [None]
  - FATIGUE [None]
  - CYSTITIS [None]
  - CARDIOACTIVE DRUG LEVEL INCREASED [None]
  - HAEMORRHOIDS [None]
  - PAIN [None]
  - RIGHT VENTRICULAR FAILURE [None]
  - HEPATIC ENZYME INCREASED [None]
